FAERS Safety Report 5983639-1 (Version None)
Quarter: 2008Q4

REPORT INFORMATION
  Report Type: 
  Country: None (occurrence: None)
  Receive Date: 20081208
  Receipt Date: 20081203
  Transmission Date: 20090506
  Serious: Yes (Other)
  Sender: FDA-Public Use
  Company Number: DE-MERCK-0810DEU00071

PATIENT
  Age: 60 Year
  Sex: Female
  Weight: 60 kg

DRUGS (9)
  1. ZETIA [Suspect]
     Indication: HYPERCHOLESTEROLAEMIA
     Route: 048
     Dates: start: 20080709
  2. ZETIA [Suspect]
     Route: 048
     Dates: start: 20080212, end: 20080401
  3. ZETIA [Suspect]
     Indication: XANTHELASMA
     Route: 048
     Dates: start: 20080709
  4. ZETIA [Suspect]
     Route: 048
     Dates: start: 20080212, end: 20080401
  5. OMEPRAZOLE [Concomitant]
     Route: 048
  6. BISOPROLOL [Concomitant]
     Indication: HYPERTENSION
     Route: 048
     Dates: start: 20080902
  7. METHYLPREDNISOLONE [Concomitant]
     Route: 048
  8. NAPROXEN [Concomitant]
     Route: 048
  9. LATANOPROST AND TIMOLOL MALEATE [Concomitant]
     Indication: GLAUCOMA
     Route: 047
     Dates: start: 20080211

REACTIONS (2)
  - CORNEAL DISORDER [None]
  - INTRAOCULAR PRESSURE INCREASED [None]
